FAERS Safety Report 20119343 (Version 2)
Quarter: 2021Q4

REPORT INFORMATION
  Report Type: Report from Study
  Country: US (occurrence: US)
  Receive Date: 20211126
  Receipt Date: 20211208
  Transmission Date: 20220304
  Serious: Yes (Hospitalization, Other)
  Sender: FDA-Public Use
  Company Number: US-PHARMACOVIGILANCE-US-KAD-21-00104

PATIENT
  Sex: Male

DRUGS (1)
  1. REZUROCK [Suspect]
     Active Substance: BELUMOSUDIL
     Indication: Chronic graft versus host disease
     Dosage: 200 MILLIGRAM, BID
     Route: 048

REACTIONS (8)
  - Hospitalisation [Not Recovered/Not Resolved]
  - Cardiovascular insufficiency [Unknown]
  - Osteonecrosis [Unknown]
  - Bone disorder [Unknown]
  - Arthropathy [Unknown]
  - Aphasia [Unknown]
  - Bone pain [Unknown]
  - Off label use [Unknown]
